FAERS Safety Report 6715539-3 (Version None)
Quarter: 2010Q2

REPORT INFORMATION
  Report Type: 
  Country: None (occurrence: None)
  Receive Date: 20100507
  Receipt Date: 20100428
  Transmission Date: 20101027
  Serious: Yes (Death)
  Sender: FDA-Public Use
  Company Number: US-ROCHE-696175

PATIENT
  Sex: Female

DRUGS (1)
  1. MYCOPHENOLATE MOFETIL [Suspect]
     Dosage: OTHER INDICATION: IMMUNO-SUPPRESSANT; DATE OF LAST DOSE OF MEDICATION: 07 MARCH 2010
     Route: 065

REACTIONS (1)
  - DEATH [None]
